FAERS Safety Report 6706317-X (Version None)
Quarter: 2010Q2

REPORT INFORMATION
  Report Type: 
  Country: None (occurrence: None)
  Receive Date: 20100430
  Receipt Date: 20100430
  Transmission Date: 20101027
  Serious: Yes (Life-Threatening)
  Sender: FDA-Public Use
  Company Number: None

PATIENT
  Age: 51 Year
  Sex: Male
  Weight: 80.2867 kg

DRUGS (3)
  1. EFFIENT [Suspect]
     Indication: ACUTE MYOCARDIAL INFARCTION
     Dosage: 60 MG ONCE PO
     Route: 048
     Dates: start: 20100330, end: 20100330
  2. EFFIENT [Suspect]
     Indication: ARTERIAL THERAPEUTIC PROCEDURE
     Dosage: 60 MG ONCE PO
     Route: 048
     Dates: start: 20100330, end: 20100330
  3. EFFIENT [Suspect]
     Indication: POSTOPERATIVE CARE
     Dosage: 60 MG ONCE PO
     Route: 048
     Dates: start: 20100330, end: 20100330

REACTIONS (4)
  - CARDIAC TAMPONADE [None]
  - HAEMORRHAGE [None]
  - HYPOTENSION [None]
  - PRESYNCOPE [None]
